FAERS Safety Report 9276524 (Version 4)
Quarter: 2013Q2

REPORT INFORMATION
  Report Type: Spontaneous
  Country: US (occurrence: US)
  Receive Date: 20130507
  Receipt Date: 20130528
  Transmission Date: 20140414
  Serious: Yes (Hospitalization)
  Sender: FDA-Public Use
  Company Number: US-JNJFOC-20130500809

PATIENT
  Age: 84 Year
  Sex: Male
  Weight: 69.9 kg

DRUGS (15)
  1. XARELTO [Suspect]
     Indication: CEREBROVASCULAR ACCIDENT PROPHYLAXIS
     Route: 048
     Dates: start: 20120501, end: 20120614
  2. XARELTO [Suspect]
     Indication: ATRIAL FIBRILLATION
     Route: 048
     Dates: start: 20120501, end: 20120614
  3. ASPIRIN [Suspect]
     Indication: CORONARY ARTERY DISEASE
     Route: 048
     Dates: start: 20061001, end: 20120614
  4. TRAMADOL [Concomitant]
     Route: 048
  5. PRAVASTATIN [Concomitant]
     Indication: PRODUCT USED FOR UNKNOWN INDICATION
     Dosage: EVERY DAY AT HOUR OF SLEEP
     Route: 048
  6. FISH OIL [Concomitant]
     Route: 048
  7. OMEPRAZOLE [Concomitant]
     Route: 048
  8. PREDNISONE [Concomitant]
     Indication: POLYMYALGIA RHEUMATICA
     Route: 048
  9. PSYLLIUM [Concomitant]
     Route: 048
  10. SITAGLIPTIN [Concomitant]
     Route: 048
  11. AMOXICILLIN [Concomitant]
     Route: 065
     Dates: start: 20121206
  12. CHOLECALCIFEROL [Concomitant]
     Route: 048
  13. LEVOTHYROXINE [Concomitant]
     Route: 048
  14. LISINOPRIL [Concomitant]
     Route: 048
  15. TRAMADOL [Concomitant]
     Route: 048

REACTIONS (9)
  - Gastrointestinal haemorrhage [Recovered/Resolved]
  - Occult blood [Recovered/Resolved]
  - Hypotension [Recovered/Resolved]
  - Anaemia [Recovered/Resolved]
  - Platelet count decreased [Recovered/Resolved]
  - Diverticulum intestinal [Unknown]
  - Large intestine polyp [Unknown]
  - Haemorrhoids [Unknown]
  - Gastritis [Unknown]
